FAERS Safety Report 7153363-0 (Version None)
Quarter: 2010Q4

REPORT INFORMATION
  Report Type: 
  Country: None (occurrence: None)
  Receive Date: 20101213
  Receipt Date: 20101208
  Transmission Date: 20110411
  Serious: Yes (Hospitalization)
  Sender: FDA-Public Use
  Company Number: FR-ROCHE-747017

PATIENT
  Sex: Female

DRUGS (9)
  1. ROCEPHIN [Suspect]
     Indication: LOWER RESPIRATORY TRACT INFECTION
     Route: 030
     Dates: start: 20101020, end: 20101026
  2. LAMISIL [Suspect]
     Indication: FUNGAL SKIN INFECTION
     Dosage: DIVISIBLE TABLET
     Route: 048
     Dates: start: 20101005, end: 20101026
  3. AMYCOR [Suspect]
     Indication: FUNGAL SKIN INFECTION
     Route: 061
     Dates: start: 20101005, end: 20101026
  4. DERMOVAL [Suspect]
     Indication: FUNGAL SKIN INFECTION
     Route: 061
     Dates: start: 20101005, end: 20101026
  5. GLUCOR [Suspect]
     Indication: DIABETES MELLITUS INADEQUATE CONTROL
     Route: 048
     Dates: start: 20101020, end: 20101026
  6. EUCREAS [Suspect]
     Indication: DIABETES MELLITUS INADEQUATE CONTROL
     Route: 048
     Dates: start: 20101020, end: 20101026
  7. EZETIMIBE/SIMVASTATIN [Suspect]
     Route: 048
     Dates: start: 20101020, end: 20101026
  8. CELESTAMINE [Suspect]
     Indication: PRURITUS
     Route: 065
     Dates: start: 20101020, end: 20101026
  9. FUCIDINE [Suspect]
     Route: 061
     Dates: start: 20101020, end: 20101026

REACTIONS (1)
  - ACUTE GENERALISED EXANTHEMATOUS PUSTULOSIS [None]
